FAERS Safety Report 22306239 (Version 4)
Quarter: 2023Q2

REPORT INFORMATION
  Report Type: Spontaneous
  Country: DE (occurrence: DE)
  Receive Date: 20230511
  Receipt Date: 20230623
  Transmission Date: 20230722
  Serious: No
  Sender: FDA-Public Use
  Company Number: DE-JNJFOC-20230454597

PATIENT
  Age: 57 Year
  Sex: Male
  Weight: 105 kg

DRUGS (1)
  1. TREMFYA [Suspect]
     Active Substance: GUSELKUMAB
     Indication: Product used for unknown indication
     Route: 065
     Dates: start: 20230419

REACTIONS (6)
  - Syringe issue [Unknown]
  - Device issue [Unknown]
  - Accidental exposure to product [Unknown]
  - Injection site pain [Unknown]
  - Product dose omission issue [Unknown]
  - Injection site rash [Unknown]
